FAERS Safety Report 15709294 (Version 1)
Quarter: 2018Q4

REPORT INFORMATION
  Report Type: Spontaneous
  Country: IT (occurrence: IT)
  Receive Date: 20181211
  Receipt Date: 20181211
  Transmission Date: 20190205
  Serious: Yes (Hospitalization, Other)
  Sender: FDA-Public Use
  Company Number: IT-MYLANLABS-2017M1070935

PATIENT
  Sex: Male
  Weight: 65 kg

DRUGS (1)
  1. BRUFEN 600 MG COMPRESSE RIVESTITE [Suspect]
     Active Substance: IBUPROFEN
     Indication: PRODUCT USED FOR UNKNOWN INDICATION
     Dosage: 12000 MG, TOTAL
     Route: 048
     Dates: start: 20171018, end: 20171018

REACTIONS (3)
  - Overdose [Unknown]
  - Poisoning [Unknown]
  - Toxicity to various agents [Recovering/Resolving]

NARRATIVE: CASE EVENT DATE: 20171018
